FAERS Safety Report 19022622 (Version 1)
Quarter: 2021Q1

REPORT INFORMATION
  Report Type: Spontaneous
  Country: GB (occurrence: GB)
  Receive Date: 20210317
  Receipt Date: 20210317
  Transmission Date: 20210420
  Serious: Yes (Death, Other)
  Sender: FDA-Public Use
  Company Number: GB-009507513-2103GBR003740

PATIENT
  Age: 22 Year
  Sex: Female

DRUGS (8)
  1. CANCIDAS [Concomitant]
     Active Substance: CASPOFUNGIN ACETATE
  2. CUBICIN [Suspect]
     Active Substance: DAPTOMYCIN
     Dosage: UNK
  3. MEROPENEM. [Suspect]
     Active Substance: MEROPENEM
     Dosage: UNK
  4. LEVETIRACETAM. [Concomitant]
     Active Substance: LEVETIRACETAM
  5. TRANEXAMIC ACID. [Concomitant]
     Active Substance: TRANEXAMIC ACID
  6. THIOPENTAL SODIUM. [Concomitant]
     Active Substance: THIOPENTAL SODIUM
  7. CYCLOSPORINE. [Suspect]
     Active Substance: CYCLOSPORINE
     Dosage: UNK
  8. CASPOFUNGIN ACETATE. [Concomitant]
     Active Substance: CASPOFUNGIN ACETATE

REACTIONS (7)
  - Enterococcal sepsis [Unknown]
  - Seizure [Unknown]
  - Nosocomial infection [Unknown]
  - Haemorrhage intracranial [Unknown]
  - Death [Fatal]
  - Brain oedema [Unknown]
  - Fungal infection [Unknown]

NARRATIVE: CASE EVENT DATE: 20080616
